FAERS Safety Report 18406023 (Version 4)
Quarter: 2020Q4

REPORT INFORMATION
  Report Type: Report from Study
  Country: CA (occurrence: CA)
  Receive Date: 20201020
  Receipt Date: 20201111
  Transmission Date: 20210114
  Serious: Yes (Other)
  Sender: FDA-Public Use
  Company Number: CA-GLAXOSMITHKLINE-CA2020AMR186090

PATIENT
  Sex: Male
  Weight: 114 kg

DRUGS (16)
  1. ACYCLOVIR. [Suspect]
     Active Substance: ACYCLOVIR
     Indication: STEROID DEPENDENCE
     Dosage: 500 UG, QD
  2. PANTOLOC [Suspect]
     Active Substance: PANTOPRAZOLE SODIUM
     Indication: EOSINOPHILIC GRANULOMATOSIS WITH POLYANGIITIS
     Dosage: 40 MG, QD
  3. EFFEXOR [Suspect]
     Active Substance: VENLAFAXINE HYDROCHLORIDE
     Indication: DEPRESSION
     Dosage: 112 MG
  4. PREDNISONE. [Suspect]
     Active Substance: PREDNISONE
     Indication: ASTHMA
     Dosage: 40 MG, QD
  5. SALBUTAMOL SULPHATE [Suspect]
     Active Substance: ALBUTEROL SULFATE
     Dosage: 4 PUFF(S)
  6. SALBUTAMOL SULPHATE [Suspect]
     Active Substance: ALBUTEROL SULFATE
     Dosage: 6 PUFF(S), QID
  7. CALCIUM [Suspect]
     Active Substance: CALCIUM
     Indication: STEROID DEPENDENCE
     Dosage: 500 UG, BID
  8. FLOVENT [Suspect]
     Active Substance: FLUTICASONE PROPIONATE
     Indication: PRODUCT USED FOR UNKNOWN INDICATION
     Dosage: 250 UG, BID
  9. AMLODIPINE [Suspect]
     Active Substance: AMLODIPINE BESYLATE
     Indication: BLOOD PRESSURE INCREASED
     Dosage: 10 MG, QD
  10. BACTRIM [Suspect]
     Active Substance: SULFAMETHOXAZOLE\TRIMETHOPRIM
     Indication: STEROID DEPENDENCE
     Dosage: 3 DF, WE
  11. SALBUTAMOL SULPHATE [Suspect]
     Active Substance: ALBUTEROL SULFATE
     Indication: ASTHMA
     Dosage: 100 UG, AS NEEDED
  12. HYDROXYUREA. [Suspect]
     Active Substance: HYDROXYUREA
     Indication: METABOLIC DISORDER
     Dosage: UNK, QD
  13. PREDNISONE. [Suspect]
     Active Substance: PREDNISONE
     Indication: EOSINOPHILIC GRANULOMATOSIS WITH POLYANGIITIS
     Dosage: 50 MG, QD
  14. SYMBICORT [Suspect]
     Active Substance: BUDESONIDE\FORMOTEROL FUMARATE DIHYDRATE
     Indication: ASTHMA
     Dosage: 2 PUFF(S), BID, 200MCG
     Route: 055
  15. VITAMIN D [Suspect]
     Active Substance: VITAMIN D NOS
     Indication: STEROID DEPENDENCE
     Dosage: 1000 UG, QD
  16. SYMBICORT [Suspect]
     Active Substance: BUDESONIDE\FORMOTEROL FUMARATE DIHYDRATE
     Dosage: 4 PUFF(S), BID

REACTIONS (10)
  - Antineutrophil cytoplasmic antibody positive [Unknown]
  - Dyspnoea [Unknown]
  - Wheezing [Unknown]
  - Disease recurrence [Unknown]
  - Asthma [Not Recovered/Not Resolved]
  - Nasal polyps [Unknown]
  - Loss of personal independence in daily activities [Unknown]
  - Blood count abnormal [Unknown]
  - Sleep disorder due to a general medical condition [Unknown]
  - Therapeutic product effect incomplete [Unknown]
